FAERS Safety Report 24847432 (Version 1)
Quarter: 2025Q1

REPORT INFORMATION
  Report Type: Spontaneous
  Country: CN (occurrence: CN)
  Receive Date: 20250116
  Receipt Date: 20250116
  Transmission Date: 20250408
  Serious: Yes (Other)
  Sender: ALEXION PHARMACEUTICALS
  Company Number: CN-ASTRAZENECA-202501GLO005466CN

PATIENT
  Age: 68 Year

DRUGS (19)
  1. DURVALUMAB [Suspect]
     Active Substance: DURVALUMAB
     Indication: Small cell lung cancer limited stage
  2. DURVALUMAB [Suspect]
     Active Substance: DURVALUMAB
     Route: 042
  3. DURVALUMAB [Suspect]
     Active Substance: DURVALUMAB
  4. DURVALUMAB [Suspect]
     Active Substance: DURVALUMAB
     Route: 042
  5. ETOPOSIDE [Suspect]
     Active Substance: ETOPOSIDE
     Indication: Small cell lung cancer limited stage
     Dosage: 100 MILLIGRAM, QD; 3 CYCLES
     Route: 042
  6. ETOPOSIDE [Suspect]
     Active Substance: ETOPOSIDE
     Dosage: 100 MILLIGRAM, QD; 3 CYCLES
  7. ETOPOSIDE [Suspect]
     Active Substance: ETOPOSIDE
     Dosage: 100 MILLIGRAM, QD; 3 CYCLES
     Route: 042
  8. ETOPOSIDE [Suspect]
     Active Substance: ETOPOSIDE
     Dosage: 100 MILLIGRAM, QD; 3 CYCLES
  9. ETOPOSIDE [Suspect]
     Active Substance: ETOPOSIDE
     Dosage: 100 MILLIGRAM, QD
     Route: 042
  10. ETOPOSIDE [Suspect]
     Active Substance: ETOPOSIDE
     Dosage: 100 MILLIGRAM, QD
  11. ETOPOSIDE [Suspect]
     Active Substance: ETOPOSIDE
     Dosage: 100 MILLIGRAM, QD
     Route: 042
  12. ETOPOSIDE [Suspect]
     Active Substance: ETOPOSIDE
     Dosage: 100 MILLIGRAM, QD
  13. CISPLATIN [Suspect]
     Active Substance: CISPLATIN
     Indication: Small cell lung cancer limited stage
     Dosage: 30 MILLIGRAM, QD
  14. CISPLATIN [Suspect]
     Active Substance: CISPLATIN
     Dosage: 30 MILLIGRAM, QD
     Route: 042
  15. CISPLATIN [Suspect]
     Active Substance: CISPLATIN
     Dosage: 30 MILLIGRAM, QD
  16. CISPLATIN [Suspect]
     Active Substance: CISPLATIN
     Dosage: 30 MILLIGRAM, QD
     Route: 042
  17. PACLITAXEL [Concomitant]
     Active Substance: PACLITAXEL
     Indication: Small cell lung cancer limited stage
  18. CARBOPLATIN [Concomitant]
     Active Substance: CARBOPLATIN
     Indication: Small cell lung cancer limited stage
     Route: 042
  19. CARBOPLATIN [Concomitant]
     Active Substance: CARBOPLATIN

REACTIONS (1)
  - Myelosuppression [Recovered/Resolved]
